FAERS Safety Report 8234947-5 (Version None)
Quarter: 2012Q1

REPORT INFORMATION
  Report Type: 
  Country: None (occurrence: None)
  Receive Date: 20120326
  Receipt Date: 20120302
  Transmission Date: 20120608
  Serious: Yes (Other)
  Sender: FDA-Public Use
  Company Number: BR-BAYER-2011-045412

PATIENT
  Age: 27 Year
  Sex: Female

DRUGS (4)
  1. VITAMIN TAB [Concomitant]
     Indication: VITAMIN SUPPLEMENTATION
     Dosage: 1 DF, QD
     Route: 048
     Dates: start: 20110301
  2. IRON [Concomitant]
     Indication: VITAMIN SUPPLEMENTATION
     Dosage: 1 DF, QD
     Route: 048
     Dates: start: 20110301
  3. BETASERON [Suspect]
     Indication: MULTIPLE SCLEROSIS
     Dosage: 9.6 MIU, QOD
     Route: 058
     Dates: start: 20060101, end: 20100201
  4. BETASERON [Suspect]
     Dosage: 1 ML, QOD
     Dates: start: 20120201

REACTIONS (7)
  - DIZZINESS [None]
  - IMMUNODEFICIENCY [None]
  - GAIT DISTURBANCE [None]
  - BLOOD PRESSURE DECREASED [None]
  - TREMOR [None]
  - CAESAREAN SECTION [None]
  - NO ADVERSE EVENT [None]
